FAERS Safety Report 9139132 (Version 1)
Quarter: 2013Q1

REPORT INFORMATION
  Report Type: Spontaneous
  Country: US (occurrence: US)
  Receive Date: 20130305
  Receipt Date: 20130305
  Transmission Date: 20140127
  Serious: No
  Sender: FDA-Public Use
  Company Number: US-VERTEX PHARMACEUTICALS INC.-2012-026573

PATIENT
  Sex: Female

DRUGS (3)
  1. MODICON [Suspect]
     Indication: PRODUCT USED FOR UNKNOWN INDICATION
     Dosage: 0.5 MG NORETHINDRONE +0.035 MG ETHINYLESTRADIOL IN THE MORNING EVERY DAY WITHIN 60 MINS
     Route: 048
  2. INCIVEK [Interacting]
     Indication: HEPATITIS C
     Dosage: DOSAGE FORM: TABLET, IN THE MORNING EVERY DAY WITHIN 60 MINUTES AFTER BREAKFAST
     Route: 048
  3. INCIVEK [Interacting]
     Indication: PRODUCT USED FOR UNKNOWN INDICATION

REACTIONS (7)
  - Drug interaction [Unknown]
  - Dizziness [Unknown]
  - Headache [Unknown]
  - Fatigue [Unknown]
  - Menstruation irregular [Unknown]
  - Nausea [Unknown]
  - Diarrhoea [Unknown]
